FAERS Safety Report 8250573-6 (Version None)
Quarter: 2012Q2

REPORT INFORMATION
  Report Type: 
  Country: None (occurrence: None)
  Receive Date: 20120402
  Receipt Date: 20120402
  Transmission Date: 20120825
  Serious: No
  Sender: FDA-Public Use
  Company Number: None

PATIENT
  Age: 17 Year
  Sex: Female
  Weight: 68.038 kg

DRUGS (1)
  1. VIIBRYD [Suspect]
     Indication: BORDERLINE PERSONALITY DISORDER
     Route: 048
     Dates: start: 20120306, end: 20120401

REACTIONS (5)
  - ANXIETY [None]
  - IRRITABILITY [None]
  - INCREASED APPETITE [None]
  - HALLUCINATION, AUDITORY [None]
  - INSOMNIA [None]
